FAERS Safety Report 7971346-5 (Version None)
Quarter: 2011Q4

REPORT INFORMATION
  Report Type: 
  Country: None (occurrence: None)
  Receive Date: 20111212
  Receipt Date: 20111208
  Transmission Date: 20120403
  Serious: Yes (Life-Threatening, Hospitalization)
  Sender: FDA-Public Use
  Company Number: AU-B.I. PHARMACEUTICALS,INC./RIDGEFIELD-2011-AU-02393AU

PATIENT
  Sex: Male
  Weight: 109 kg

DRUGS (10)
  1. ASPIRIN [Concomitant]
  2. METOPROLOL TARTRATE [Concomitant]
  3. PERINDOPRIL ERBUMINE [Concomitant]
  4. LIPIDIL [Concomitant]
  5. DIAMICRON [Concomitant]
  6. METFORMIN HCL [Concomitant]
  7. CRESTOR [Concomitant]
  8. FUROSEMIDE [Concomitant]
  9. PRADAXA [Suspect]
     Indication: ATRIAL FIBRILLATION
     Dosage: 300 MG
     Dates: start: 20110617, end: 20111101
  10. LANOXIN [Concomitant]

REACTIONS (5)
  - LOWER RESPIRATORY TRACT INFECTION [None]
  - SEPSIS [None]
  - RENAL FAILURE [None]
  - URINARY TRACT INFECTION [None]
  - MEMORY IMPAIRMENT [None]
